FAERS Safety Report 4557456-3 (Version None)
Quarter: 2005Q1

REPORT INFORMATION
  Report Type: 
  Country: None (occurrence: None)
  Receive Date: 20050103
  Receipt Date: 20041029
  Transmission Date: 20050727
  Serious: Yes (Other)
  Sender: FDA-Public Use
  Company Number: 2004UW18969

PATIENT
  Age: 54 Year
  Sex: Female
  Weight: 69.4003 kg

DRUGS (4)
  1. CRESTOR [Suspect]
     Indication: HYPERCHOLESTEROLAEMIA
     Dosage: 10 MG DAILY PO
     Route: 048
     Dates: start: 20040629, end: 20040903
  2. FOSAMAX [Concomitant]
  3. ESTRATEST [Concomitant]
  4. TEQUIN [Concomitant]

REACTIONS (7)
  - ALANINE AMINOTRANSFERASE INCREASED [None]
  - CHILLS [None]
  - FATIGUE [None]
  - HEADACHE [None]
  - MALAISE [None]
  - PAIN [None]
  - PYREXIA [None]
